FAERS Safety Report 22323682 (Version 1)
Quarter: 2023Q2

REPORT INFORMATION
  Report Type: Spontaneous
  Country: US (occurrence: US)
  Receive Date: 20230516
  Receipt Date: 20230516
  Transmission Date: 20230721
  Serious: Yes (Other)
  Sender: FDA-Public Use
  Company Number: US-ELI_LILLY_AND_COMPANY-US202305005183

PATIENT
  Sex: Female

DRUGS (1)
  1. VERZENIO [Suspect]
     Active Substance: ABEMACICLIB
     Indication: Breast cancer stage IV
     Dosage: UNK UNK, UNKNOWN
     Route: 065

REACTIONS (2)
  - Malignant neoplasm progression [Unknown]
  - Drug ineffective [Unknown]
